FAERS Safety Report 25167070 (Version 1)
Quarter: 2025Q2

REPORT INFORMATION
  Report Type: Spontaneous
  Country: JP (occurrence: JP)
  Receive Date: 20250407
  Receipt Date: 20250407
  Transmission Date: 20250717
  Serious: Yes (Other)
  Sender: CHEPLAPHARM
  Company Number: JP-CP_KK-2025JP003341

PATIENT
  Sex: Female
  Weight: 2.2899 kg

DRUGS (11)
  1. OLANZAPINE [Suspect]
     Active Substance: OLANZAPINE
     Indication: Foetal exposure timing unspecified
     Route: 064
  2. OLANZAPINE [Suspect]
     Active Substance: OLANZAPINE
     Indication: Foetal exposure timing unspecified
     Route: 064
  3. LORAZEPAM [Suspect]
     Active Substance: LORAZEPAM
     Indication: Foetal exposure timing unspecified
     Route: 064
  4. QUETIAPINE [Suspect]
     Active Substance: QUETIAPINE
     Indication: Foetal exposure timing unspecified
     Route: 064
  5. PROPOFOL [Suspect]
     Active Substance: PROPOFOL
     Indication: Foetal exposure timing unspecified
     Route: 064
  6. SUCCINYLCHOLINE [Suspect]
     Active Substance: SUCCINYLCHOLINE
     Indication: Foetal exposure timing unspecified
     Route: 064
  7. ROCURONIUM BROMIDE [Suspect]
     Active Substance: ROCURONIUM BROMIDE
     Indication: Foetal exposure timing unspecified
     Route: 064
  8. NICARDIPINE HYDROCHLORIDE [Suspect]
     Active Substance: NICARDIPINE HYDROCHLORIDE
     Indication: Foetal exposure timing unspecified
     Route: 064
  9. BETAMETHASONE [Suspect]
     Active Substance: BETAMETHASONE
     Indication: Foetal exposure timing unspecified
     Route: 064
  10. DULOXETINE [Suspect]
     Active Substance: DULOXETINE
     Indication: Foetal exposure timing unspecified
     Route: 064
  11. BIPERIDEN HYDROCHLORIDE [Suspect]
     Active Substance: BIPERIDEN HYDROCHLORIDE
     Indication: Foetal exposure timing unspecified
     Route: 064

REACTIONS (3)
  - Transient tachypnoea of the newborn [Unknown]
  - Drug withdrawal syndrome neonatal [Recovering/Resolving]
  - Foetal exposure during pregnancy [Recovered/Resolved]
